FAERS Safety Report 12781150 (Version 1)
Quarter: 2016Q3

REPORT INFORMATION
  Report Type: Spontaneous
  Country: US (occurrence: US)
  Receive Date: 20160926
  Receipt Date: 20160926
  Transmission Date: 20161109
  Serious: No
  Sender: FDA-Public Use
  Company Number: US-BAYER-2016-182917

PATIENT
  Sex: Female

DRUGS (1)
  1. CLIMARA [Suspect]
     Active Substance: ESTRADIOL
     Indication: HORMONE REPLACEMENT THERAPY
     Dosage: 1 PATCH, OW
     Route: 062

REACTIONS (4)
  - Product adhesion issue [None]
  - Inappropriate schedule of drug administration [None]
  - Rash erythematous [None]
  - Skin irritation [None]
